FAERS Safety Report 16696976 (Version 3)
Quarter: 2019Q3

REPORT INFORMATION
  Report Type: Spontaneous
  Country: US (occurrence: US)
  Receive Date: 20190813
  Receipt Date: 20190826
  Transmission Date: 20191004
  Serious: No
  Sender: FDA-Public Use
  Company Number: US-PFIZER INC-2018301950

PATIENT
  Age: 71 Year
  Sex: Male
  Weight: 80.27 kg

DRUGS (7)
  1. LYRICA [Suspect]
     Active Substance: PREGABALIN
     Indication: SPINAL CORD DISORDER
  2. LYRICA [Suspect]
     Active Substance: PREGABALIN
     Indication: ARTHRITIS
  3. LYRICA [Suspect]
     Active Substance: PREGABALIN
     Indication: PAIN
     Dosage: 225 MG, 2X/DAY (1 CAPSULE TWICE A DAY)
     Route: 048
     Dates: start: 2008
  4. LYRICA [Suspect]
     Active Substance: PREGABALIN
     Indication: POLYNEUROPATHY
  5. LYRICA [Suspect]
     Active Substance: PREGABALIN
     Indication: NEUROPATHY PERIPHERAL
  6. TRAZODONE [Concomitant]
     Active Substance: TRAZODONE HYDROCHLORIDE
     Indication: POST-TRAUMATIC STRESS DISORDER
     Dosage: 200 MG, 1X/DAY [TWO TABLETS BY MOUTH NIGHTLY]
     Route: 048
  7. LYRICA [Suspect]
     Active Substance: PREGABALIN
     Indication: OSTEOARTHRITIS

REACTIONS (5)
  - Arthritis [Unknown]
  - Withdrawal syndrome [Recovering/Resolving]
  - Intentional product misuse [Unknown]
  - Feeling abnormal [Unknown]
  - Product dose omission [Unknown]
